FAERS Safety Report 7965257-9 (Version None)
Quarter: 2011Q4

REPORT INFORMATION
  Report Type: 
  Country: None (occurrence: None)
  Receive Date: 20111208
  Receipt Date: 20111204
  Transmission Date: 20120403
  Serious: Yes (Congenital Anomaly)
  Sender: FDA-Public Use
  Company Number: HU-BAYER-2011-064481

PATIENT
  Age: 8 Day
  Sex: Female
  Weight: 3.7 kg

DRUGS (2)
  1. BETASERON [Suspect]
     Dosage: UNK
     Route: 064
  2. BETASERON [Suspect]
     Dosage: UNK
     Route: 064

REACTIONS (1)
  - FOETAL MALFORMATION [None]
